FAERS Safety Report 10736838 (Version 1)
Quarter: 2015Q1

REPORT INFORMATION
  Report Type: Spontaneous
  Country: US (occurrence: None)
  Receive Date: 20150122
  Receipt Date: 20150122
  Transmission Date: 20150721
  Serious: Yes (Death)
  Sender: FDA-Public Use
  Company Number: POI0573201500016

PATIENT
  Age: 69 Year
  Sex: Male

DRUGS (9)
  1. ESCITALOPRAM [Suspect]
     Active Substance: ESCITALOPRAM OXALATE
     Route: 048
     Dates: end: 2013
  2. CARDIAC GLYCOSIDE [Suspect]
     Active Substance: UNSPECIFIED INGREDIENT
     Route: 048
     Dates: end: 2013
  3. SALICYLATE [Suspect]
     Active Substance: SALICYLIC ACID
     Route: 048
     Dates: end: 2013
  4. OXYBUTYNIN CHLORIDE EXTENDED-RELEASE TABLETS USP 5MG, 10MG AND AND 15MG (OXYBUTYNIN HYDROCHLORIDE) (TABLET) [Suspect]
     Active Substance: OXYBUTYNIN CHLORIDE
     Route: 048
     Dates: end: 2013
  5. FINASTERIDE. [Suspect]
     Active Substance: FINASTERIDE
     Route: 048
     Dates: end: 2013
  6. CLONAZEPAM. [Suspect]
     Active Substance: CLONAZEPAM
     Route: 048
     Dates: end: 2013
  7. TRAZODONE [Suspect]
     Active Substance: TRAZODONE HYDROCHLORIDE
     Route: 048
     Dates: end: 2013
  8. LAMOTRIGINE. [Suspect]
     Active Substance: LAMOTRIGINE
     Route: 048
     Dates: end: 2013
  9. QUETIAPINE [Suspect]
     Active Substance: QUETIAPINE
     Route: 048
     Dates: end: 2013

REACTIONS (1)
  - Completed suicide [None]

NARRATIVE: CASE EVENT DATE: 2013
